FAERS Safety Report 16211088 (Version 2)
Quarter: 2019Q2

REPORT INFORMATION
  Report Type: Spontaneous
  Country: PL (occurrence: PL)
  Receive Date: 20190418
  Receipt Date: 20190427
  Transmission Date: 20190711
  Serious: Yes (Hospitalization, Other)
  Sender: FDA-Public Use
  Company Number: PL-ROCHE-2304743

PATIENT
  Sex: Male

DRUGS (1)
  1. TECENTRIQ [Suspect]
     Active Substance: ATEZOLIZUMAB
     Indication: PRODUCT USED FOR UNKNOWN INDICATION
     Route: 042
     Dates: start: 20190206, end: 20190206

REACTIONS (6)
  - Anaemia [Unknown]
  - Laboratory test abnormal [Unknown]
  - Lung disorder [Unknown]
  - Blood creatinine increased [Unknown]
  - Influenza [Unknown]
  - Hepatotoxicity [Unknown]
